FAERS Safety Report 24363255 (Version 1)
Quarter: 2024Q3

REPORT INFORMATION
  Report Type: Spontaneous
  Country: US (occurrence: US)
  Receive Date: 20240925
  Receipt Date: 20240925
  Transmission Date: 20241017
  Serious: Yes (Other)
  Sender: ORGANON
  Company Number: US-ORGANON-O2409USA001832

PATIENT
  Age: 51 Year
  Sex: Male

DRUGS (1)
  1. SINGULAIR [Suspect]
     Active Substance: MONTELUKAST SODIUM
     Indication: Vertigo
     Dosage: ONCE DAILY
     Route: 048
     Dates: start: 2015, end: 2024

REACTIONS (5)
  - Suicidal ideation [Not Recovered/Not Resolved]
  - Surgery [Unknown]
  - Depression [Not Recovered/Not Resolved]
  - Drug effective for unapproved indication [Unknown]
  - Product use in unapproved indication [Unknown]

NARRATIVE: CASE EVENT DATE: 20240301
